FAERS Safety Report 14895551 (Version 1)
Quarter: 2018Q2

REPORT INFORMATION
  Report Type: Spontaneous
  Country: IN (occurrence: IN)
  Receive Date: 20180515
  Receipt Date: 20180515
  Transmission Date: 20180711
  Serious: Yes (Other)
  Sender: FDA-Public Use
  Company Number: IN-MACLEODS PHARMACEUTICALS US LTD-MAC2018013256

PATIENT

DRUGS (1)
  1. ARIPIPRAZOLE. [Suspect]
     Active Substance: ARIPIPRAZOLE
     Indication: CONDITION AGGRAVATED
     Dosage: 20 MILLIGRAM, QD
     Route: 065

REACTIONS (1)
  - Acute myopia [Recovered/Resolved]
